FAERS Safety Report 5500535-4 (Version None)
Quarter: 2007Q4

REPORT INFORMATION
  Report Type: 
  Country: None (occurrence: None)
  Receive Date: 20071029
  Receipt Date: 20071017
  Transmission Date: 20080405
  Serious: Yes (Hospitalization)
  Sender: FDA-Public Use
  Company Number: US-AMGEN-US248498

PATIENT
  Sex: Female

DRUGS (4)
  1. PANITUMUMAB [Suspect]
     Indication: COLORECTAL CANCER
     Route: 042
     Dates: start: 20070703
  2. IRINOTECAN HCL [Suspect]
     Route: 065
  3. FLUOROURACIL [Suspect]
     Route: 065
  4. FOLINIC ACID [Suspect]
     Route: 065

REACTIONS (3)
  - ANAEMIA [None]
  - DEHYDRATION [None]
  - HYPOKALAEMIA [None]
